FAERS Safety Report 8290175-9 (Version None)
Quarter: 2012Q2

REPORT INFORMATION
  Report Type: 
  Country: None (occurrence: None)
  Receive Date: 20120417
  Receipt Date: 20120410
  Transmission Date: 20120825
  Serious: Yes (Disabling)
  Sender: FDA-Public Use
  Company Number: US-PFIZER INC-2012005767

PATIENT
  Sex: Male

DRUGS (2)
  1. NORVASC [Suspect]
     Indication: CARDIAC DISORDER
     Dosage: UNK
  2. NITROSTAT [Suspect]
     Indication: CARDIAC DISORDER
     Dosage: UNK

REACTIONS (1)
  - ROAD TRAFFIC ACCIDENT [None]
